FAERS Safety Report 21417731 (Version 3)
Quarter: 2023Q1

REPORT INFORMATION
  Report Type: Spontaneous
  Country: JP (occurrence: JP)
  Receive Date: 20221006
  Receipt Date: 20230224
  Transmission Date: 20230417
  Serious: Yes (Hospitalization)
  Sender: FDA-Public Use
  Company Number: JP-Eisai-202208577_LEN-HCC_P_1

PATIENT
  Age: 58 Year
  Sex: Male
  Weight: 45 kg

DRUGS (2)
  1. LENVATINIB [Suspect]
     Active Substance: LENVATINIB
     Indication: Hepatocellular carcinoma
     Route: 048
     Dates: start: 20210406, end: 202110
  2. LENVATINIB [Suspect]
     Active Substance: LENVATINIB
     Dosage: DOSE AND FREQUENCY UNKNOWN (DOSE REDUCED)
     Route: 048
     Dates: start: 202110, end: 20211008

REACTIONS (1)
  - Tracheo-oesophageal fistula [Recovering/Resolving]

NARRATIVE: CASE EVENT DATE: 20210901
